FAERS Safety Report 20090565 (Version 5)
Quarter: 2022Q2

REPORT INFORMATION
  Report Type: Report from Study
  Country: None (occurrence: US)
  Receive Date: 20211119
  Receipt Date: 20220511
  Transmission Date: 20220720
  Serious: Yes (Other)
  Sender: FDA-Public Use
  Company Number: US-AKCEA THERAPEUTICS, INC.-2021IS001734

PATIENT
  Age: 56 Year
  Sex: Male

DRUGS (5)
  1. TEGSEDI [Suspect]
     Active Substance: INOTERSEN SODIUM
     Indication: Hereditary neuropathic amyloidosis
     Route: 058
     Dates: start: 20210802, end: 20220128
  2. DEVICE [Suspect]
     Active Substance: DEVICE
  3. TEGSEDI [Suspect]
     Active Substance: INOTERSEN SODIUM
     Route: 058
     Dates: start: 20210827
  4. TEGSEDI [Suspect]
     Active Substance: INOTERSEN SODIUM
     Route: 058
     Dates: start: 20210828, end: 20220211
  5. FUROSEMIDE [Concomitant]
     Active Substance: FUROSEMIDE
     Route: 065

REACTIONS (19)
  - pH urine increased [Unknown]
  - Urinary occult blood positive [Unknown]
  - Anuria [Unknown]
  - Urine protein/creatinine ratio increased [Unknown]
  - Urine ketone body present [Unknown]
  - Red blood cells urine positive [Unknown]
  - Chromaturia [Unknown]
  - Urine abnormality [Unknown]
  - Malaise [Unknown]
  - Swelling [Unknown]
  - Fatigue [Unknown]
  - Bacterial test positive [Unknown]
  - Protein urine present [Unknown]
  - Aspartate aminotransferase increased [Unknown]
  - Alanine aminotransferase increased [Unknown]
  - White blood cells urine positive [Unknown]
  - Urine leukocyte esterase positive [Unknown]
  - Glomerulonephritis [Unknown]
  - Proteinuria [Unknown]

NARRATIVE: CASE EVENT DATE: 20211019
